FAERS Safety Report 10581713 (Version 1)
Quarter: 2014Q4

REPORT INFORMATION
  Report Type: Other
  Country: FR (occurrence: FR)
  Receive Date: 20141113
  Receipt Date: 20141113
  Transmission Date: 20150529
  Serious: Yes (Death)
  Sender: FDA-Public Use
  Company Number: FR-MYLANLABS-2014M1009212

PATIENT

DRUGS (3)
  1. FASTURTEC [Concomitant]
     Active Substance: RASBURICASE
     Indication: SMALL CELL LUNG CANCER
     Dosage: 15 MG, QD
     Route: 042
     Dates: start: 20140912, end: 20140914
  2. ETOPOSIDE MYLAN 20 MG/ML SOLUTION ? DILUER POUR PERFUSION [Suspect]
     Active Substance: ETOPOSIDE
     Indication: SMALL CELL LUNG CANCER
     Dosage: 192 MG, QD
     Route: 042
     Dates: start: 20140912, end: 20140914
  3. CARBOPLATIN HOSPIRA [Suspect]
     Active Substance: CARBOPLATIN
     Indication: SMALL CELL LUNG CANCER
     Dosage: 170 MG, ONCE
     Route: 042
     Dates: start: 20140912, end: 20140912

REACTIONS (2)
  - Septic shock [Fatal]
  - Bone marrow failure [Fatal]

NARRATIVE: CASE EVENT DATE: 20140918
